FAERS Safety Report 4375601-X (Version None)
Quarter: 2004Q2

REPORT INFORMATION
  Report Type: 
  Country: None (occurrence: None)
  Receive Date: 20040607
  Receipt Date: 20040519
  Transmission Date: 20050107
  Serious: Yes (Life-Threatening)
  Sender: FDA-Public Use
  Company Number: PIR 0405033A

PATIENT
  Age: 89 Year
  Sex: Male
  Weight: 89 kg

DRUGS (2)
  1. CEFAZOLIN AND DEXTROSE [Suspect]
     Indication: POSTOPERATIVE CARE
     Dosage: 1GM Q6HR. IV
     Route: 042
  2. CEFAZOLIN AND DEXTROSE [Suspect]
     Indication: PROPHYLAXIS
     Dosage: 1GM Q6HR. IV
     Route: 042

REACTIONS (2)
  - BLOOD PRESSURE SYSTOLIC DECREASED [None]
  - PHARMACEUTICAL PRODUCT COMPLAINT [None]
